FAERS Safety Report 5039097-7 (Version None)
Quarter: 2006Q2

REPORT INFORMATION
  Report Type: 
  Country: None (occurrence: None)
  Receive Date: 20060629
  Receipt Date: 20060614
  Transmission Date: 20061013
  Serious: Yes (Hospitalization)
  Sender: FDA-Public Use
  Company Number: GB-MERCK-0606GBR00049

PATIENT
  Age: 85 Year
  Sex: Female

DRUGS (11)
  1. MIDAMOR [Suspect]
     Indication: FLUID RETENTION
     Route: 048
     Dates: start: 20060512, end: 20060522
  2. CALCIUM CARBONATE AND CHOLECALCIFEROL [Concomitant]
     Indication: OSTEOPOROSIS
     Route: 065
  3. BETAHISTINE HYDROCHLORIDE [Concomitant]
     Indication: DIZZINESS
     Route: 065
  4. CABERGOLINE [Concomitant]
     Indication: PITUITARY TUMOUR BENIGN
     Route: 065
  5. NITROGLYCERIN [Concomitant]
     Indication: CHEST PAIN
     Route: 065
  6. LANSOPRAZOLE [Concomitant]
     Indication: GASTROOESOPHAGEAL REFLUX DISEASE
     Route: 065
  7. NICORANDIL [Concomitant]
     Indication: ANGINA PECTORIS
     Route: 065
  8. ACETAMINOPHEN [Concomitant]
     Route: 065
  9. VERAPAMIL HYDROCHLORIDE [Concomitant]
     Route: 065
  10. SIMVASTATIN [Concomitant]
     Indication: BLOOD CHOLESTEROL INCREASED
     Route: 065
  11. ALENDRONATE SODIUM [Concomitant]
     Indication: OSTEOPOROSIS
     Route: 065

REACTIONS (2)
  - BLOOD SODIUM DECREASED [None]
  - FALL [None]
